FAERS Safety Report 11072359 (Version 1)
Quarter: 2015Q2

REPORT INFORMATION
  Report Type: Spontaneous
  Country: US (occurrence: US)
  Receive Date: 20150428
  Receipt Date: 20150428
  Transmission Date: 20150821
  Serious: No
  Sender: FDA-Public Use
  Company Number: US-MYLANLABS-2014S1006688

PATIENT
  Age: 81 Year
  Sex: Male
  Weight: 77.11 kg

DRUGS (1)
  1. DILTIAZEM HYDROCHLORIDE EXTENDED-RELEASE CAPSULES, USP [Suspect]
     Active Substance: DILTIAZEM HYDROCHLORIDE
     Indication: BLOOD PRESSURE INCREASED
     Dosage: 180 MG,QD
     Route: 048
     Dates: start: 20140110

REACTIONS (1)
  - Urine odour abnormal [Not Recovered/Not Resolved]

NARRATIVE: CASE EVENT DATE: 201401
